FAERS Safety Report 9360738 (Version 1)
Quarter: 2013Q2

REPORT INFORMATION
  Report Type: Spontaneous
  Country: US (occurrence: None)
  Receive Date: 20130620
  Receipt Date: 20130620
  Transmission Date: 20140414
  Serious: No
  Sender: FDA-Public Use
  Company Number: None

PATIENT
  Age: 42 Year
  Sex: Male
  Weight: 85.9 kg

DRUGS (2)
  1. PEG-INTRON [Suspect]
     Indication: COMA HEPATIC
     Dosage: 120MCG/0.5ML WEEKLY SQ
     Route: 058
  2. RIBAVIRIN [Suspect]
     Dosage: 3TAB/PO/BID DAILY PO
     Route: 048

REACTIONS (1)
  - Depression [None]
